FAERS Safety Report 20059990 (Version 1)
Quarter: 2021Q4

REPORT INFORMATION
  Report Type: Spontaneous
  Country: PT (occurrence: PT)
  Receive Date: 20211111
  Receipt Date: 20211111
  Transmission Date: 20220303
  Serious: Yes (Other)
  Sender: FDA-Public Use
  Company Number: None

PATIENT
  Age: 75 Year
  Sex: Male

DRUGS (2)
  1. VEKLURY [Suspect]
     Active Substance: REMDESIVIR
     Indication: COVID-19
     Dosage: DIA1:200MG, DIA 2: 100MG
     Route: 042
     Dates: start: 20210830, end: 20210901
  2. VEKLURY [Suspect]
     Active Substance: REMDESIVIR
     Dosage: DIA1:200MG, DIA 2: 100MG
     Route: 042
     Dates: start: 20210829, end: 20210829

REACTIONS (1)
  - Hepatic cytolysis [Recovered/Resolved]

NARRATIVE: CASE EVENT DATE: 20210829
